FAERS Safety Report 11697434 (Version 3)
Quarter: 2016Q4

REPORT INFORMATION
  Report Type: Report from Study
  Country: JP (occurrence: JP)
  Receive Date: 20151104
  Receipt Date: 20161206
  Transmission Date: 20170206
  Serious: Yes (Hospitalization, Other)
  Sender: FDA-Public Use
  Company Number: JP-ASTELLAS-2010JP006029

PATIENT
  Age: 41 Year
  Sex: Female
  Weight: 40 kg

DRUGS (61)
  1. ARTIST [Concomitant]
     Active Substance: CARVEDILOL
     Route: 048
     Dates: start: 20130328, end: 20140822
  2. DIART [Concomitant]
     Active Substance: AZOSEMIDE
     Indication: PROPHYLAXIS
     Route: 048
     Dates: start: 20130417, end: 20140328
  3. DIART [Concomitant]
     Active Substance: AZOSEMIDE
     Indication: VENTRICULAR EXTRASYSTOLES
  4. MIZORIBINE [Concomitant]
     Active Substance: MIZORIBINE
     Indication: LUPUS NEPHRITIS
     Dosage: UNK UNK, UNKNOWN FREQ.
     Route: 048
  5. TACROLIMUS. [Suspect]
     Active Substance: TACROLIMUS
     Route: 048
     Dates: start: 20090422, end: 20090811
  6. TACROLIMUS. [Suspect]
     Active Substance: TACROLIMUS
     Route: 048
     Dates: start: 20090812, end: 20090908
  7. PREDONINE [Suspect]
     Active Substance: PREDNISOLONE\PREDNISOLONE ACETATE\PREDNISOLONE SODIUM SUCCINATE
     Route: 048
     Dates: start: 20110714, end: 20120125
  8. FERROMIA [Concomitant]
     Active Substance: FERROUS CITRATE
     Route: 048
     Dates: start: 20100513, end: 20141226
  9. ACTONEL [Concomitant]
     Active Substance: RISEDRONATE SODIUM
     Indication: PROPHYLAXIS
     Route: 048
     Dates: end: 20100117
  10. DORNER [Concomitant]
     Active Substance: BERAPROST SODIUM
     Indication: CHILLBLAINS
     Dosage: 60 MCG, ONCE DAILY
     Route: 048
     Dates: start: 20110810, end: 20111130
  11. GLAKAY [Concomitant]
     Active Substance: MENATETRENONE
     Indication: PROPHYLAXIS
     Route: 048
     Dates: start: 20100315, end: 20101117
  12. DIOVAN [Concomitant]
     Active Substance: VALSARTAN
     Indication: PRODUCT USED FOR UNKNOWN INDICATION
     Route: 048
     Dates: end: 20131018
  13. DIOVAN [Concomitant]
     Active Substance: VALSARTAN
     Route: 048
     Dates: start: 20131019
  14. ADALAT [Suspect]
     Active Substance: NIFEDIPINE
     Indication: PRODUCT USED FOR UNKNOWN INDICATION
     Route: 048
     Dates: start: 20081015, end: 20130327
  15. PREDONINE [Suspect]
     Active Substance: PREDNISOLONE\PREDNISOLONE ACETATE\PREDNISOLONE SODIUM SUCCINATE
     Route: 048
     Dates: start: 20090520, end: 20090616
  16. ASPENON [Suspect]
     Active Substance: APRINDINE HYDROCHLORIDE
     Dates: start: 20131221, end: 20150914
  17. DORNER [Concomitant]
     Active Substance: BERAPROST SODIUM
     Dosage: 60 MCG, ONCE DAILY
     Route: 048
     Dates: start: 20160222
  18. MEVALOTIN [Concomitant]
     Active Substance: PRAVASTATIN SODIUM
     Indication: HYPERCHOLESTEROLAEMIA
     Route: 048
     Dates: start: 20110224
  19. DIART [Concomitant]
     Active Substance: AZOSEMIDE
     Indication: CARDIAC FAILURE CHRONIC
  20. TACROLIMUS. [Suspect]
     Active Substance: TACROLIMUS
     Route: 048
     Dates: start: 20091007
  21. ADALAT [Suspect]
     Active Substance: NIFEDIPINE
     Route: 048
     Dates: start: 20130328, end: 20131220
  22. PREDONINE [Suspect]
     Active Substance: PREDNISOLONE\PREDNISOLONE ACETATE\PREDNISOLONE SODIUM SUCCINATE
     Indication: LUPUS NEPHRITIS
     Route: 048
     Dates: end: 20081014
  23. PREDONINE [Suspect]
     Active Substance: PREDNISOLONE\PREDNISOLONE ACETATE\PREDNISOLONE SODIUM SUCCINATE
     Route: 048
     Dates: start: 20081203, end: 20090127
  24. PREDONINE [Suspect]
     Active Substance: PREDNISOLONE\PREDNISOLONE ACETATE\PREDNISOLONE SODIUM SUCCINATE
     Route: 048
     Dates: start: 20091102, end: 20100117
  25. ASPENON [Suspect]
     Active Substance: APRINDINE HYDROCHLORIDE
     Route: 048
     Dates: start: 20150915
  26. MIZORIBINE [Concomitant]
     Active Substance: MIZORIBINE
     Route: 048
     Dates: start: 20141129
  27. MAGLAX [Concomitant]
     Active Substance: MAGNESIUM OXIDE
     Indication: PRODUCT USED FOR UNKNOWN INDICATION
     Route: 048
     Dates: start: 20150316, end: 20160904
  28. CRAVIT [Concomitant]
     Active Substance: LEVOFLOXACIN
     Indication: CYSTITIS
     Dosage: UNK UNK, UNKNOWN FREQ.
     Route: 065
     Dates: start: 201402
  29. DINAGEST [Concomitant]
     Indication: METRORRHAGIA
     Dosage: UNK UNK, UNKNOWN FREQ.
     Route: 065
     Dates: start: 2014
  30. PREDONINE [Suspect]
     Active Substance: PREDNISOLONE\PREDNISOLONE ACETATE\PREDNISOLONE SODIUM SUCCINATE
     Route: 048
     Dates: start: 20090225, end: 20090324
  31. PREDONINE [Suspect]
     Active Substance: PREDNISOLONE\PREDNISOLONE ACETATE\PREDNISOLONE SODIUM SUCCINATE
     Route: 048
     Dates: start: 20110324, end: 20110713
  32. ACTONEL [Concomitant]
     Active Substance: RISEDRONATE SODIUM
     Route: 048
     Dates: start: 20101124, end: 20101215
  33. DORNER [Concomitant]
     Active Substance: BERAPROST SODIUM
     Indication: VASCULAR SKIN DISORDER
     Dosage: UNK UNK, UNKNOWN FREQ.
     Route: 048
     Dates: start: 20081203, end: 20090422
  34. GLAKAY [Concomitant]
     Active Substance: MENATETRENONE
     Route: 048
     Dates: start: 20101216, end: 20110105
  35. GASTER [Concomitant]
     Active Substance: FAMOTIDINE
     Indication: PRODUCT USED FOR UNKNOWN INDICATION
     Dosage: UNK UNK, UNKNOWN FREQ.
     Route: 048
     Dates: end: 20081104
  36. TACROLIMUS. [Suspect]
     Active Substance: TACROLIMUS
     Route: 048
     Dates: start: 20081015, end: 20090421
  37. TACROLIMUS. [Suspect]
     Active Substance: TACROLIMUS
     Route: 048
     Dates: start: 20090909, end: 20091006
  38. ADALAT [Suspect]
     Active Substance: NIFEDIPINE
     Route: 048
     Dates: start: 20131221, end: 20140822
  39. PREDONINE [Suspect]
     Active Substance: PREDNISOLONE\PREDNISOLONE ACETATE\PREDNISOLONE SODIUM SUCCINATE
     Route: 048
     Dates: start: 20081015, end: 20081202
  40. PREDONINE [Suspect]
     Active Substance: PREDNISOLONE\PREDNISOLONE ACETATE\PREDNISOLONE SODIUM SUCCINATE
     Route: 048
     Dates: start: 20090909, end: 20091101
  41. PREDONINE [Suspect]
     Active Substance: PREDNISOLONE\PREDNISOLONE ACETATE\PREDNISOLONE SODIUM SUCCINATE
     Route: 048
     Dates: start: 20100712, end: 20110323
  42. PREDONINE [Suspect]
     Active Substance: PREDNISOLONE\PREDNISOLONE ACETATE\PREDNISOLONE SODIUM SUCCINATE
     Route: 048
     Dates: start: 20120712, end: 20130719
  43. PREDONINE [Suspect]
     Active Substance: PREDNISOLONE\PREDNISOLONE ACETATE\PREDNISOLONE SODIUM SUCCINATE
     Route: 048
     Dates: start: 20130720
  44. DORNER [Concomitant]
     Active Substance: BERAPROST SODIUM
     Dosage: 120 MCG, ONCE DAILY
     Route: 048
     Dates: start: 20111201, end: 20140523
  45. ARTIST [Concomitant]
     Active Substance: CARVEDILOL
     Indication: PRODUCT USED FOR UNKNOWN INDICATION
     Route: 048
     Dates: start: 20090225, end: 20121226
  46. TACROLIMUS. [Suspect]
     Active Substance: TACROLIMUS
     Indication: LUPUS NEPHRITIS
     Route: 048
     Dates: start: 20081001, end: 20081014
  47. ASPENON [Suspect]
     Active Substance: APRINDINE HYDROCHLORIDE
     Indication: VENTRICULAR EXTRASYSTOLES
     Route: 048
     Dates: start: 20131018, end: 20131220
  48. DORNER [Concomitant]
     Active Substance: BERAPROST SODIUM
  49. ARTIST [Concomitant]
     Active Substance: CARVEDILOL
     Route: 048
     Dates: start: 20121227, end: 20130327
  50. BAYASPIRIN [Concomitant]
     Active Substance: ASPIRIN
     Indication: CEREBRAL INFARCTION
     Route: 048
     Dates: start: 20130816
  51. PREDONINE [Suspect]
     Active Substance: PREDNISOLONE\PREDNISOLONE ACETATE\PREDNISOLONE SODIUM SUCCINATE
     Route: 048
     Dates: start: 20090128, end: 20090224
  52. PREDONINE [Suspect]
     Active Substance: PREDNISOLONE\PREDNISOLONE ACETATE\PREDNISOLONE SODIUM SUCCINATE
     Route: 048
     Dates: start: 20100118, end: 20100711
  53. FERROMIA [Concomitant]
     Active Substance: FERROUS CITRATE
     Indication: PRODUCT USED FOR UNKNOWN INDICATION
     Dosage: UNK UNK, UNKNOWN FREQ.
     Route: 048
     Dates: end: 20090715
  54. FOSAMAC [Concomitant]
     Active Substance: ALENDRONATE SODIUM
     Indication: PROPHYLAXIS
     Route: 048
     Dates: start: 20110112
  55. CALBLOCK [Concomitant]
     Active Substance: AZELNIDIPINE
     Indication: PRODUCT USED FOR UNKNOWN INDICATION
     Dosage: UNK UNK, UNKNOWN FREQ.
     Route: 048
     Dates: end: 20081014
  56. DUPHASTON [Concomitant]
     Active Substance: DYDROGESTERONE
     Indication: METRORRHAGIA
     Dosage: UNK UNK, UNKNOWN FREQ.
     Route: 065
     Dates: start: 2014
  57. PREDONINE [Suspect]
     Active Substance: PREDNISOLONE\PREDNISOLONE ACETATE\PREDNISOLONE SODIUM SUCCINATE
     Route: 048
     Dates: start: 20090325, end: 20090519
  58. PREDONINE [Suspect]
     Active Substance: PREDNISOLONE\PREDNISOLONE ACETATE\PREDNISOLONE SODIUM SUCCINATE
     Route: 048
     Dates: start: 20090617, end: 20090908
  59. PREDONINE [Suspect]
     Active Substance: PREDNISOLONE\PREDNISOLONE ACETATE\PREDNISOLONE SODIUM SUCCINATE
     Route: 048
     Dates: start: 20120126, end: 20120711
  60. TAKEPRON [Concomitant]
     Active Substance: LANSOPRAZOLE
     Indication: PROPHYLAXIS
     Route: 048
     Dates: start: 20081105
  61. DORNER [Concomitant]
     Active Substance: BERAPROST SODIUM
     Indication: RAYNAUD^S PHENOMENON
     Dosage: 60 MCG, ONCE DAILY
     Route: 048
     Dates: start: 20110420, end: 20110615

REACTIONS (13)
  - Cystitis [Recovering/Resolving]
  - Chillblains [Recovered/Resolved]
  - Cerebral infarction [Recovering/Resolving]
  - Oedema peripheral [Recovered/Resolved]
  - Adenomyosis [Recovered/Resolved]
  - Vascular skin disorder [Recovering/Resolving]
  - Menorrhagia [Recovered/Resolved]
  - Cardiac failure chronic [Recovering/Resolving]
  - Tremor [Recovered/Resolved]
  - Metrorrhagia [Recovering/Resolving]
  - Metrorrhagia [Recovered/Resolved]
  - Raynaud^s phenomenon [Recovering/Resolving]
  - Ventricular extrasystoles [Recovering/Resolving]

NARRATIVE: CASE EVENT DATE: 201008
